FAERS Safety Report 5758781-0 (Version None)
Quarter: 2008Q2

REPORT INFORMATION
  Report Type: 
  Country: None (occurrence: None)
  Receive Date: 20080530
  Receipt Date: 20080515
  Transmission Date: 20081010
  Serious: Yes (Other)
  Sender: FDA-Public Use
  Company Number: 2008S1008419

PATIENT
  Sex: Male

DRUGS (9)
  1. WARFARIN SODIUM [Suspect]
     Indication: DRUG USE FOR UNKNOWN INDICATION
     Dosage: 4 MG
     Dates: start: 20010101
  2. WARFARIN SODIUM [Suspect]
     Indication: DRUG USE FOR UNKNOWN INDICATION
     Dosage: 4 MG
     Dates: start: 20060201
  3. WARFARIN SODIUM [Suspect]
     Indication: DRUG USE FOR UNKNOWN INDICATION
     Dosage: 4 MG
     Dates: start: 20060501
  4. AMIODARONE HCL [Suspect]
     Indication: ATRIAL FLUTTER
     Dosage: 200 MG; ORAL;
     Route: 048
     Dates: start: 20060201
  5. ARYTHMOL (PROPAFENONE HYDROCHLORIDE) [Suspect]
     Indication: ATRIAL FLUTTER
     Dosage: 150 MG; 3 TIMES A DAY
  6. ATORVASTATIN 9ATORVASTATIN) (CON.) [Concomitant]
  7. CANDESARTAN (CANDESARTAN (CON.) [Concomitant]
  8. DIGOXIN (DIGOXIN) (CON.) [Concomitant]
  9. THYROXINE (LEVOTHYROXINE SODIUM) (CON.) [Concomitant]

REACTIONS (4)
  - ATRIAL FLUTTER [None]
  - DRUG INTERACTION [None]
  - HYPOTHYROIDISM [None]
  - INTERNATIONAL NORMALISED RATIO INCREASED [None]
